FAERS Safety Report 5781434-X (Version None)
Quarter: 2008Q2

REPORT INFORMATION
  Report Type: 
  Country: None (occurrence: None)
  Receive Date: 20080623
  Receipt Date: 20080617
  Transmission Date: 20081010
  Serious: Yes (Hospitalization)
  Sender: FDA-Public Use
  Company Number: DE-KINGPHARMUSA00001-K200800692

PATIENT

DRUGS (1)
  1. THROMBIN NOS [Suspect]
     Indication: VASCULAR PSEUDOANEURYSM
     Dosage: 2000 IU, SINGLE
     Route: 013

REACTIONS (2)
  - ARTERIAL THROMBOSIS LIMB [None]
  - PERIPHERAL ISCHAEMIA [None]
